FAERS Safety Report 4696130-X (Version None)
Quarter: 2005Q2

REPORT INFORMATION
  Report Type: 
  Country: None (occurrence: None)
  Receive Date: 20050620
  Receipt Date: 20050608
  Transmission Date: 20051028
  Serious: Yes (Other)
  Sender: FDA-Public Use
  Company Number: 2005080692

PATIENT
  Age: 12 Year
  Sex: Female

DRUGS (1)
  1. GENOTROPIN [Suspect]
     Indication: GROWTH HORMONE DEFICIENCY
     Dosage: 0.8 MG (0.8 MG, DAILY) SUBCUTANEOUS
     Route: 058
     Dates: start: 20021102

REACTIONS (3)
  - DIFFUSE LARGE B-CELL LYMPHOMA [None]
  - LYMPHOCYTIC HYPOPHYSITIS [None]
  - PITUITARY ENLARGEMENT [None]
